FAERS Safety Report 7075408-9 (Version None)
Quarter: 2010Q4

REPORT INFORMATION
  Report Type: 
  Country: None (occurrence: None)
  Receive Date: 20101030
  Receipt Date: 20101013
  Transmission Date: 20110411
  Serious: No
  Sender: FDA-Public Use
  Company Number: US-WYE-H17524710

PATIENT
  Age: 59 Year
  Sex: Male
  Weight: 99.88 kg

DRUGS (5)
  1. ALAVERT [Suspect]
     Indication: EYE PRURITUS
     Dosage: 1 TABLET EVERY 1 PRN
     Route: 048
     Dates: start: 20080101, end: 20100912
  2. ALAVERT [Suspect]
     Indication: EYE IRRITATION
  3. ALAVERT [Suspect]
     Indication: THROAT IRRITATION
  4. ALAVERT [Suspect]
     Indication: SNEEZING
  5. ALAVERT [Suspect]
     Indication: RHINORRHOEA

REACTIONS (1)
  - DRUG EFFECT DECREASED [None]
